FAERS Safety Report 14210187 (Version 1)
Quarter: 2017Q4

REPORT INFORMATION
  Report Type: Spontaneous
  Country: BR (occurrence: BR)
  Receive Date: 20171121
  Receipt Date: 20171121
  Transmission Date: 20180321
  Serious: Yes (Other)
  Sender: FDA-Public Use
  Company Number: BR-PFIZER INC-2017492332

PATIENT
  Age: 80 Year
  Sex: Female

DRUGS (1)
  1. LORENIN [Suspect]
     Active Substance: LORAZEPAM
     Dosage: 2 MG, UNK

REACTIONS (2)
  - Dementia Alzheimer^s type [Unknown]
  - Insomnia [Unknown]
